FAERS Safety Report 18179936 (Version 1)
Quarter: 2020Q3

REPORT INFORMATION
  Report Type: Spontaneous
  Country: US (occurrence: US)
  Receive Date: 20200821
  Receipt Date: 20200821
  Transmission Date: 20201103
  Serious: No
  Sender: FDA-Public Use
  Company Number: US-LEADINGPHARMA-US-2020LEASPO00130

PATIENT
  Age: 66 Year
  Sex: Female
  Weight: 155 kg

DRUGS (4)
  1. LISINOPRIL. [Concomitant]
     Active Substance: LISINOPRIL
     Indication: BLOOD PRESSURE ABNORMAL
     Route: 065
  2. LAMICTAL [Concomitant]
     Active Substance: LAMOTRIGINE
     Indication: SEIZURE
     Dosage: 03 PILLS EACH IN THE MORNING AND EVENING
     Route: 065
  3. LORAZEPAM TABLETS USP [Suspect]
     Active Substance: LORAZEPAM
     Indication: ANXIETY
     Dosage: 02 PILLS AT A TIME ONCE A DAY AT NIGHT
     Route: 048
     Dates: start: 20200808
  4. LORAZEPAM TABLETS USP [Suspect]
     Active Substance: LORAZEPAM
     Dosage: HALF A PILL
     Route: 048
     Dates: start: 20200810

REACTIONS (8)
  - Eyelid disorder [Not Recovered/Not Resolved]
  - Headache [Not Recovered/Not Resolved]
  - Wrong technique in product usage process [None]
  - Dizziness [Not Recovered/Not Resolved]
  - Malaise [Not Recovered/Not Resolved]
  - Feeling abnormal [Not Recovered/Not Resolved]
  - Unevaluable event [Not Recovered/Not Resolved]
  - Gait disturbance [Not Recovered/Not Resolved]

NARRATIVE: CASE EVENT DATE: 20200808
